FAERS Safety Report 4986063-3 (Version None)
Quarter: 2006Q2

REPORT INFORMATION
  Report Type: 
  Country: None (occurrence: None)
  Receive Date: 20060428
  Receipt Date: 20060418
  Transmission Date: 20061013
  Serious: Yes (Disabling, Congenital Anomaly)
  Sender: FDA-Public Use
  Company Number: 2006AC00777

PATIENT
  Sex: Male

DRUGS (3)
  1. BUDESONIDE [Suspect]
     Indication: ASTHMA
     Route: 064
  2. BETAMETHASONE [Suspect]
     Indication: ASTHMA
     Dosage: 9 - 16 MG/DAY FROM 28+4 GESTATIONAL WEEKS
     Route: 064
  3. PREDNISOLONE [Suspect]
     Indication: ASTHMA
     Dosage: FROM 30+3 GESTATIONAL WEEKS, DOSE GRADUALLY REDUCED
     Route: 064

REACTIONS (11)
  - AUTISM [None]
  - CAESAREAN SECTION [None]
  - DEEP VEIN THROMBOSIS [None]
  - DRUG EXPOSURE DURING PREGNANCY [None]
  - FOETAL GROWTH RETARDATION [None]
  - MENTAL IMPAIRMENT [None]
  - NYSTAGMUS [None]
  - PERIVENTRICULAR LEUKOMALACIA [None]
  - PULMONARY EMBOLISM [None]
  - RETINOPATHY [None]
  - VISUAL ACUITY REDUCED [None]
